FAERS Safety Report 4607729-0 (Version None)
Quarter: 2005Q1

REPORT INFORMATION
  Report Type: 
  Country: None (occurrence: None)
  Receive Date: 20050310
  Receipt Date: 20050225
  Transmission Date: 20050727
  Serious: Yes (Hospitalization)
  Sender: FDA-Public Use
  Company Number: RS005019-J

PATIENT
  Age: 79 Year
  Sex: Male
  Weight: 35 kg

DRUGS (4)
  1. PARIET  (RABEPRAZOLE) (RABEPRAZOLE SODIUM) [Suspect]
     Indication: GASTRIC ULCER HAEMORRHAGE
     Dosage: 20 MG, 1 IN 1 D, ORAL
     Route: 048
     Dates: start: 20041225, end: 20050115
  2. OMEPRAZOLE [Suspect]
     Dosage: 20 MG, 1 IN 1 D
     Dates: start: 20041224, end: 20041224
  3. FAMOTIDINE [Suspect]
     Dosage: 40 MG, 1 IN 1 D
     Dates: start: 20050120, end: 20050224
  4. CONTRAST MEDIA (CONTRAST MEDIA) [Concomitant]

REACTIONS (2)
  - BLOOD CREATININE INCREASED [None]
  - CREATININE RENAL CLEARANCE DECREASED [None]
